FAERS Safety Report 9462341 (Version 1)
Quarter: 2013Q3

REPORT INFORMATION
  Report Type: Spontaneous
  Country: US (occurrence: US)
  Receive Date: 20130816
  Receipt Date: 20130816
  Transmission Date: 20140515
  Serious: Yes (Death)
  Sender: FDA-Public Use
  Company Number: 2013SP002333

PATIENT
  Sex: Female

DRUGS (7)
  1. LATUDA [Suspect]
     Indication: SCHIZOPHRENIA, PARANOID TYPE
     Route: 048
  2. LATUDA [Suspect]
     Indication: PSYCHOTIC DISORDER
     Route: 048
  3. LATUDA [Suspect]
     Indication: SCHIZOPHRENIA, PARANOID TYPE
     Route: 048
  4. LATUDA [Suspect]
     Indication: PSYCHOTIC DISORDER
     Route: 048
  5. TRILEPTAL [Concomitant]
     Indication: PRODUCT USED FOR UNKNOWN INDICATION
  6. ZYPREXA [Concomitant]
     Indication: PRODUCT USED FOR UNKNOWN INDICATION
  7. ALL OTHER THERAPEUTIC PRODUCTS [Concomitant]
     Indication: MULTIMORBIDITY

REACTIONS (1)
  - Death [Fatal]
